FAERS Safety Report 12191233 (Version 1)
Quarter: 2016Q1

REPORT INFORMATION
  Report Type: Spontaneous
  Country: US (occurrence: None)
  Receive Date: 20160317
  Receipt Date: 20160317
  Transmission Date: 20160526
  Serious: No
  Sender: FDA-Public Use
  Company Number: None

PATIENT
  Age: 48 Year
  Sex: Female

DRUGS (1)
  1. HUMIRA [Suspect]
     Active Substance: ADALIMUMAB
     Indication: PSORIASIS
     Dosage: 80MG/40MG DAY 1, DAY 8 AND THEN EVERY SUBCUTANEOUS
     Route: 058

REACTIONS (2)
  - Chapped lips [None]
  - Lip dry [None]

NARRATIVE: CASE EVENT DATE: 20141115
